FAERS Safety Report 8997864 (Version 1)
Quarter: 2013Q1

REPORT INFORMATION
  Report Type: Report from Study
  Country: ES (occurrence: ES)
  Receive Date: 20130104
  Receipt Date: 20130104
  Transmission Date: 20140127
  Serious: Yes (Other)
  Sender: FDA-Public Use
  Company Number: ES-ROCHE-1174575

PATIENT
  Age: 48 Year
  Sex: Male

DRUGS (5)
  1. CLONAZEPAM [Suspect]
     Indication: POST LAMINECTOMY SYNDROME
     Route: 048
  2. CYMBALTA [Suspect]
     Indication: POST LAMINECTOMY SYNDROME
     Route: 048
  3. LIORESAL [Suspect]
     Indication: POST LAMINECTOMY SYNDROME
     Route: 048
  4. LYRICA [Suspect]
     Indication: POST LAMINECTOMY SYNDROME
     Route: 048
  5. ZALDIAR [Suspect]
     Indication: POST LAMINECTOMY SYNDROME
     Dosage: 37.5 MG/325 MG
     Route: 048

REACTIONS (1)
  - Erectile dysfunction [Not Recovered/Not Resolved]
